FAERS Safety Report 9270706 (Version 1)
Quarter: 2013Q2

REPORT INFORMATION
  Report Type: Spontaneous
  Country: US (occurrence: US)
  Receive Date: 20130503
  Receipt Date: 20130503
  Transmission Date: 20140414
  Serious: No
  Sender: FDA-Public Use
  Company Number: US-ASTRAZENECA-2013SE26263

PATIENT
  Sex: Male

DRUGS (3)
  1. SEROQUEL [Suspect]
     Indication: POST-TRAUMATIC STRESS DISORDER
     Route: 048
  2. KLONOPIN [Suspect]
     Indication: POST-TRAUMATIC STRESS DISORDER
  3. CELEXA [Suspect]
     Indication: POST-TRAUMATIC STRESS DISORDER

REACTIONS (13)
  - Intentional drug misuse [Unknown]
  - Enuresis [Recovered/Resolved]
  - Hypervigilance [Unknown]
  - Paranoia [Recovered/Resolved]
  - Mood swings [Recovered/Resolved]
  - Depression [Recovered/Resolved]
  - Sleep apnoea syndrome [Recovered/Resolved]
  - Anger [Unknown]
  - Dysuria [Recovered/Resolved]
  - Loss of dreaming [Unknown]
  - Lethargy [Recovered/Resolved]
  - Tremor [Recovered/Resolved]
  - Weight increased [Recovered/Resolved]
